FAERS Safety Report 19678221 (Version 4)
Quarter: 2025Q3

REPORT INFORMATION
  Report Type: Report from Study
  Country: EU (occurrence: EU)
  Receive Date: 20210810
  Receipt Date: 20250904
  Transmission Date: 20251021
  Serious: Yes (Death, Other)
  Sender: CELLTRION
  Company Number: EU-CELLTRION INC.-2021PL010444

PATIENT

DRUGS (3)
  1. RITUXIMAB [Suspect]
     Active Substance: RITUXIMAB
     Indication: Autoimmune haemolytic anaemia
     Route: 065
  2. RITUXIMAB [Suspect]
     Active Substance: RITUXIMAB
     Indication: Hepatitis
  3. RITUXIMAB [Suspect]
     Active Substance: RITUXIMAB
     Indication: Hepatitis neonatal

REACTIONS (5)
  - Traumatic lung injury [Fatal]
  - Acute respiratory failure [Fatal]
  - Hypogammaglobulinaemia [Unknown]
  - Lymphopenia [Unknown]
  - Intentional product use issue [Unknown]
